FAERS Safety Report 4889205-3 (Version None)
Quarter: 2006Q1

REPORT INFORMATION
  Report Type: 
  Country: None (occurrence: None)
  Receive Date: 20060120
  Receipt Date: 20060120
  Transmission Date: 20060701
  Serious: Yes (Life-Threatening, Hospitalization, Disabling)
  Sender: FDA-Public Use
  Company Number: None

PATIENT
  Sex: Female
  Weight: 65.7716 kg

DRUGS (2)
  1. ORTHO EVRA [Suspect]
     Indication: CONTRACEPTION
     Dosage: ONE PATCH/WEEK
     Dates: start: 20030601, end: 20040201
  2. ORTHO EVRA [Suspect]
     Indication: DYSMENORRHOEA
     Dosage: ONE PATCH/WEEK
     Dates: start: 20030601, end: 20040201

REACTIONS (4)
  - LUNG DISORDER [None]
  - PAIN [None]
  - PULMONARY HYPERTENSION [None]
  - PULMONARY THROMBOSIS [None]
